FAERS Safety Report 7860339-4 (Version None)
Quarter: 2011Q4

REPORT INFORMATION
  Report Type: 
  Country: None (occurrence: None)
  Receive Date: 20111027
  Receipt Date: 20111013
  Transmission Date: 20120403
  Serious: Yes (Other)
  Sender: FDA-Public Use
  Company Number: PHHY2011BR88368

PATIENT
  Age: 67 Year
  Sex: Male

DRUGS (6)
  1. RASILEZ [Suspect]
     Dosage: 300 MG
     Dates: start: 20110802
  2. RASILEZ [Suspect]
     Dosage: 150 MG
     Dates: start: 20110505
  3. AMLODIPINE [Concomitant]
     Dosage: 5 MG, UNK
  4. DIOVAN [Suspect]
     Dosage: 160 MG, QD
     Dates: start: 20110301
  5. ALLOPURINOL [Concomitant]
     Dosage: 100 MG, UNK
  6. SOTALOL HCL [Concomitant]
     Dosage: 80 MG, UNK

REACTIONS (3)
  - ADENOMA BENIGN [None]
  - HYPERTENSION [None]
  - NODULE [None]
